FAERS Safety Report 7488832-7 (Version None)
Quarter: 2011Q2

REPORT INFORMATION
  Report Type: 
  Country: None (occurrence: None)
  Receive Date: 20110518
  Receipt Date: 20110512
  Transmission Date: 20111010
  Serious: Yes (Hospitalization)
  Sender: FDA-Public Use
  Company Number: US-GENZYME-FABR-1001931

PATIENT
  Sex: Male
  Weight: 77.098 kg

DRUGS (5)
  1. PREDNISONE [Concomitant]
     Indication: PREMEDICATION
     Dosage: 30 MG, Q2W
  2. FABRAZYME [Suspect]
     Dosage: 40 MG, Q2W
     Route: 042
  3. FABRAZYME [Suspect]
     Indication: FABRY'S DISEASE
     Dosage: 85 MG, Q2W
     Route: 042
     Dates: start: 20010212
  4. IBUPROFEN [Concomitant]
     Indication: PREMEDICATION
     Dosage: 600 MG, Q2W
  5. BENADRYL [Concomitant]
     Indication: PREMEDICATION
     Dosage: 25 MG, Q2W

REACTIONS (1)
  - MENISCUS LESION [None]
